FAERS Safety Report 9749415 (Version 1)
Quarter: 2013Q4

REPORT INFORMATION
  Report Type: Spontaneous
  Country: US (occurrence: US)
  Receive Date: 20131212
  Receipt Date: 20131212
  Transmission Date: 20140711
  Serious: No
  Sender: FDA-Public Use
  Company Number: US-BIOGENIDEC-2013BI093300

PATIENT
  Sex: Female

DRUGS (12)
  1. TECFIDERA [Suspect]
     Indication: PRODUCT USED FOR UNKNOWN INDICATION
     Route: 048
  2. TECFIDERA [Suspect]
     Indication: PRODUCT USED FOR UNKNOWN INDICATION
     Route: 048
  3. CELEBREX [Concomitant]
  4. CYMBALTA [Concomitant]
  5. FLEXERIL [Concomitant]
  6. FLONASE SPR [Concomitant]
  7. OMEPRAZOLE [Concomitant]
  8. PRAVASTATIN [Concomitant]
  9. VIVELLE-DOT DIS [Concomitant]
  10. VITAMIN D [Concomitant]
  11. PROBIOTIC [Concomitant]
  12. ULTRAM ER [Concomitant]

REACTIONS (3)
  - Pain [Unknown]
  - Rhinorrhoea [Unknown]
  - Abdominal discomfort [Unknown]
